FAERS Safety Report 10563434 (Version 2)
Quarter: 2014Q4

REPORT INFORMATION
  Report Type: Spontaneous
  Country: US (occurrence: US)
  Receive Date: 20141104
  Receipt Date: 20141104
  Transmission Date: 20150529
  Serious: Yes (Hospitalization, Other)
  Sender: FDA-Public Use
  Company Number: US-GLAXOSMITHKLINE-B0725693A

PATIENT
  Sex: Male

DRUGS (2)
  1. AVANDAMET [Suspect]
     Active Substance: METFORMIN HYDROCHLORIDE\ROSIGLITAZONE MALEATE
     Indication: DIABETES MELLITUS
     Dosage: UNK, BID
     Route: 048
     Dates: start: 20030409, end: 200704
  2. AVANDIA [Suspect]
     Active Substance: ROSIGLITAZONE MALEATE
     Indication: DIABETES MELLITUS
     Route: 048
     Dates: start: 20020529, end: 20070121

REACTIONS (9)
  - Implantable defibrillator insertion [Unknown]
  - Carotid artery disease [Not Recovered/Not Resolved]
  - Congestive cardiomyopathy [Unknown]
  - Coronary artery disease [Unknown]
  - Heart valve replacement [Unknown]
  - Atrioventricular block first degree [Unknown]
  - Aortic valve disease [Unknown]
  - Atrial flutter [Unknown]
  - Cardiac failure congestive [Unknown]
